FAERS Safety Report 9913466 (Version 1)
Quarter: 2014Q1

REPORT INFORMATION
  Report Type: Spontaneous
  Country: US (occurrence: None)
  Receive Date: 20140218
  Receipt Date: 20140218
  Transmission Date: 20141002
  Serious: Yes (Other)
  Sender: FDA-Public Use
  Company Number: None

PATIENT
  Age: 24 Year
  Sex: Female

DRUGS (2)
  1. HUMIRA 40MG/0.8ML PEN ABBVIE [Suspect]
     Indication: RHEUMATOID ARTHRITIS
     Route: 058
     Dates: start: 20140121, end: 20140213
  2. METHOTRXATE [Concomitant]

REACTIONS (2)
  - Myalgia [None]
  - Fatigue [None]
